FAERS Safety Report 20906196 (Version 1)
Quarter: 2022Q2

REPORT INFORMATION
  Report Type: Spontaneous
  Country: US (occurrence: US)
  Receive Date: 20220602
  Receipt Date: 20220602
  Transmission Date: 20220721
  Serious: No
  Sender: FDA-Public Use
  Company Number: US-ELI_LILLY_AND_COMPANY-US202206000853

PATIENT

DRUGS (2)
  1. INSULIN LISPRO [Suspect]
     Active Substance: INSULIN LISPRO
     Indication: Product used for unknown indication
     Dosage: UNK UNK, UNKNOWN
     Route: 065
     Dates: start: 202111
  2. INSULIN LISPRO [Suspect]
     Active Substance: INSULIN LISPRO
     Dosage: UNK UNK, UNKNOWN
     Route: 065

REACTIONS (9)
  - Insulin resistance [Unknown]
  - Pain [Unknown]
  - Erythema [Unknown]
  - Hyperglycaemia [Unknown]
  - Drug hypersensitivity [Unknown]
  - Blood glucose increased [Unknown]
  - Injection site swelling [Unknown]
  - Injection site pain [Unknown]
  - Drug ineffective [Unknown]
